FAERS Safety Report 4663578-9 (Version None)
Quarter: 2005Q2

REPORT INFORMATION
  Report Type: 
  Country: None (occurrence: None)
  Receive Date: 20050511
  Receipt Date: 20050303
  Transmission Date: 20051028
  Serious: Yes (Other)
  Sender: FDA-Public Use
  Company Number: 397615

PATIENT
  Sex: Male

DRUGS (2)
  1. PEGASYS [Suspect]
     Dates: start: 20050114
  2. COPEGUS [Suspect]
     Dates: start: 20050114

REACTIONS (7)
  - DIARRHOEA [None]
  - DRY SKIN [None]
  - HEADACHE [None]
  - INFLUENZA LIKE ILLNESS [None]
  - PRURITUS [None]
  - STOMATITIS [None]
  - WHITE BLOOD CELL COUNT DECREASED [None]
